FAERS Safety Report 9636397 (Version 3)
Quarter: 2013Q4

REPORT INFORMATION
  Report Type: Report from Study
  Country: DE (occurrence: DE)
  Receive Date: 20131021
  Receipt Date: 20131128
  Transmission Date: 20140711
  Serious: Yes (Hospitalization, Other)
  Sender: FDA-Public Use
  Company Number: DE-ROCHE-1291900

PATIENT
  Sex: Female

DRUGS (3)
  1. RANIBIZUMAB [Suspect]
     Indication: VISUAL IMPAIRMENT
     Route: 050
     Dates: start: 20130927
  2. RANIBIZUMAB [Suspect]
     Route: 050
     Dates: start: 20121220
  3. ACETYLSALICYLIC ACID [Concomitant]

REACTIONS (3)
  - Retinal vein occlusion [Unknown]
  - Visual acuity reduced [Unknown]
  - Blindness [Unknown]
